FAERS Safety Report 10529118 (Version 2)
Quarter: 2014Q4

REPORT INFORMATION
  Report Type: Spontaneous
  Country: FR (occurrence: None)
  Receive Date: 20141006
  Receipt Date: 20141215
  Transmission Date: 20150528
  Serious: Yes (Hospitalization)
  Sender: FDA-Public Use
  Company Number: GAM-327-14-FR

PATIENT
  Age: 81 Year
  Sex: Male

DRUGS (6)
  1. ALLOPURINOL. [Concomitant]
     Active Substance: ALLOPURINOL
  2. OCTAGAM IMMUNE GLOBULIN (HUMAN) [Suspect]
     Active Substance: HUMAN IMMUNOGLOBULIN G
     Indication: CHRONIC LYMPHOCYTIC LEUKAEMIA
     Dosage: 30 G (1X1 / CYCLICAL)
     Route: 042
     Dates: start: 20140228, end: 20140718
  3. GLICAZIDE [Concomitant]
     Active Substance: GLICLAZIDE
  4. FENOFIBRATE. [Concomitant]
     Active Substance: FENOFIBRATE
  5. FUROSEMIDE. [Concomitant]
     Active Substance: FUROSEMIDE
  6. AMLODIPINE [Concomitant]
     Active Substance: AMLODIPINE BESYLATE

REACTIONS (5)
  - Dermatitis exfoliative [None]
  - Toxic skin eruption [None]
  - Vasculitis [None]
  - Palmoplantar keratoderma [None]
  - Hypersensitivity [None]

NARRATIVE: CASE EVENT DATE: 20140721
